FAERS Safety Report 4546317-1 (Version None)
Quarter: 2005Q1

REPORT INFORMATION
  Report Type: 
  Country: None (occurrence: None)
  Receive Date: 20050103
  Receipt Date: 20041222
  Transmission Date: 20050727
  Serious: Yes (Death, Other)
  Sender: FDA-Public Use
  Company Number: 2004080312

PATIENT
  Age: 39 Year
  Sex: Female

DRUGS (11)
  1. GEODON [Suspect]
     Indication: ILL-DEFINED DISORDER
  2. ZYRTEC [Suspect]
     Indication: ILL-DEFINED DISORDER
  3. LIPITOR [Suspect]
     Indication: ILL-DEFINED DISORDER
  4. IBUPROFEN [Suspect]
     Indication: ILL-DEFINED DISORDER
  5. OXACARBAZEPINE (OXCARBAZEPINE) [Suspect]
     Indication: ILL-DEFINED DISORDER
     Dates: start: 20010101
  6. ESCITALOPRAM (ESCITALOPRAM) [Suspect]
     Indication: ILL-DEFINED DISORDER
  7. LORAZEPAM [Concomitant]
  8. METOPROLOL [Concomitant]
  9. ZOLPIDEM TARTRATE [Concomitant]
  10. METHYLPHENIDATE HCL [Concomitant]
  11. LANSOPRAZOLE [Concomitant]

REACTIONS (6)
  - ARRHYTHMIA [None]
  - BRAIN DEATH [None]
  - CIRCULATORY COLLAPSE [None]
  - FALL [None]
  - LOSS OF CONSCIOUSNESS [None]
  - POST PROCEDURAL COMPLICATION [None]
